FAERS Safety Report 18733448 (Version 1)
Quarter: 2021Q1

REPORT INFORMATION
  Report Type: Other
  Country: US (occurrence: US)
  Receive Date: 20210113
  Receipt Date: 20210113
  Transmission Date: 20210419
  Serious: No
  Sender: FDA-Public Use
  Company Number: US-ROCHE-2746791

PATIENT
  Sex: Female

DRUGS (1)
  1. OCREVUS [Suspect]
     Active Substance: OCRELIZUMAB
     Indication: MULTIPLE SCLEROSIS
     Dosage: 600 MG EVERY 6 MONTHS?MOST RECENT INFUSIONS RECEIVED ON MAR/2020, 18/MAY/2020
     Route: 042
     Dates: start: 20190923

REACTIONS (1)
  - COVID-19 [Unknown]
